FAERS Safety Report 6647369-5 (Version None)
Quarter: 2010Q1

REPORT INFORMATION
  Report Type: 
  Country: None (occurrence: None)
  Receive Date: 20100323
  Receipt Date: 20100311
  Transmission Date: 20100710
  Serious: Yes (Other)
  Sender: FDA-Public Use
  Company Number: US-GILEAD-2010-0026375

PATIENT
  Sex: Female
  Weight: 51.7 kg

DRUGS (16)
  1. AZTREONAM LYSINE [Suspect]
     Indication: CYSTIC FIBROSIS
     Route: 055
     Dates: start: 20091214, end: 20091231
  2. AZTREONAM LYSINE [Suspect]
     Route: 055
     Dates: start: 20080806
  3. ACETYLCYSTEINE [Concomitant]
     Dates: start: 19770101
  4. ALBUTEROL SULFATE AUTOHALER [Concomitant]
     Dates: start: 19770101
  5. AZITHROMYCIN [Concomitant]
     Dates: start: 20070101
  6. CREON [Concomitant]
     Dates: start: 19990101, end: 20100104
  7. TYLENOL-500 [Concomitant]
     Dates: start: 20050603
  8. BACTRIM DS [Concomitant]
     Dates: start: 20060101, end: 20091231
  9. MEPHYTON [Concomitant]
     Dates: start: 20080616
  10. MARINOL [Concomitant]
     Dates: start: 20091027, end: 20091231
  11. FOLIC ACID [Concomitant]
     Dates: start: 20080515
  12. ADEK [Concomitant]
     Dates: start: 20090104
  13. VITAMIN C [Concomitant]
     Dates: start: 20060524, end: 20100104
  14. VITAMIN D3 [Concomitant]
     Dates: start: 20090828, end: 20100104
  15. VITAMIN E [Concomitant]
     Dates: start: 20090207, end: 20100104
  16. VITAMIN A [Concomitant]
     Dates: start: 20080101, end: 20100104

REACTIONS (2)
  - ABORTION SPONTANEOUS [None]
  - TWIN PREGNANCY [None]
